FAERS Safety Report 25247646 (Version 1)
Quarter: 2025Q2

REPORT INFORMATION
  Report Type: Spontaneous
  Country: US (occurrence: US)
  Receive Date: 20250428
  Receipt Date: 20250428
  Transmission Date: 20250716
  Serious: No
  Sender: GLAUKOS
  Company Number: US-GLK-000626

PATIENT
  Sex: Male

DRUGS (1)
  1. IDOSE TR [Suspect]
     Active Substance: TRAVOPROST
     Indication: Product used for unknown indication
     Route: 047
     Dates: start: 20250226, end: 20250326

REACTIONS (5)
  - Corneal oedema [Recovering/Resolving]
  - Visual acuity reduced [Unknown]
  - Medical device removal [Unknown]
  - Corneal endothelial cell loss [Unknown]
  - Frustration tolerance decreased [Unknown]
